FAERS Safety Report 7626412-0 (Version None)
Quarter: 2011Q3

REPORT INFORMATION
  Report Type: 
  Country: None (occurrence: None)
  Receive Date: 20110714
  Receipt Date: 20110630
  Transmission Date: 20111222
  Serious: Yes (Hospitalization)
  Sender: FDA-Public Use
  Company Number: USA/USA/11/0018612

PATIENT
  Age: 63 Year
  Sex: Male
  Weight: 81.6475 kg

DRUGS (2)
  1. GLIMEPIRIDE [Suspect]
     Indication: DIABETES MELLITUS
     Dosage: 1 MG, 1 IN 1 D, ORAL
     Route: 048
     Dates: start: 20110425, end: 20110525
  2. CRESTOR [Concomitant]

REACTIONS (12)
  - PRODUCT COUNTERFEIT [None]
  - VOMITING [None]
  - COUNTERFEIT DRUG ADMINISTERED [None]
  - INSOMNIA [None]
  - PARAESTHESIA [None]
  - CHEST PAIN [None]
  - CHILLS [None]
  - HYPERHIDROSIS [None]
  - BLOOD GLUCOSE INCREASED [None]
  - DYSPNOEA [None]
  - BODY TEMPERATURE INCREASED [None]
  - GASTROOESOPHAGEAL REFLUX DISEASE [None]
